FAERS Safety Report 15832974 (Version 1)
Quarter: 2018Q4

REPORT INFORMATION
  Report Type: Spontaneous
  Country: US (occurrence: US)
  Receive Date: 20181220
  Receipt Date: 20181220
  Transmission Date: 20190205
  Serious: No
  Sender: FDA-Public Use
  Company Number: None

PATIENT
  Sex: Male
  Weight: 69.4 kg

DRUGS (11)
  1. NALOXONE [Concomitant]
     Active Substance: NALOXONE
  2. TAMSULOSIN [Concomitant]
     Active Substance: TAMSULOSIN
  3. ZALEPLON. [Concomitant]
     Active Substance: ZALEPLON
  4. HARVONI [Suspect]
     Active Substance: LEDIPASVIR\SOFOSBUVIR
     Indication: HEPATITIS C
     Route: 048
     Dates: start: 20170921, end: 20171213
  5. TUMS [Concomitant]
     Active Substance: CALCIUM CARBONATE
  6. LORATADINE. [Concomitant]
     Active Substance: LORATADINE
  7. CLONAZEPAM. [Suspect]
     Active Substance: CLONAZEPAM
  8. DEXTROAMPHETAMINE. [Suspect]
     Active Substance: DEXTROAMPHETAMINE
  9. GABAPENTIN. [Concomitant]
     Active Substance: GABAPENTIN
  10. METHADONE [Concomitant]
     Active Substance: METHADONE HYDROCHLORIDE
  11. ETOH [Suspect]
     Active Substance: ALCOHOL

REACTIONS (3)
  - Substance abuse [None]
  - Therapy cessation [None]
  - Drug detoxification [None]

NARRATIVE: CASE EVENT DATE: 20171110
